FAERS Safety Report 24292355 (Version 2)
Quarter: 2024Q3

REPORT INFORMATION
  Report Type: Spontaneous
  Country: NL (occurrence: NL)
  Receive Date: 20240906
  Receipt Date: 20240911
  Transmission Date: 20241017
  Serious: Yes (Life-Threatening, Hospitalization)
  Sender: FRESENIUS KABI
  Company Number: None

PATIENT
  Age: 67 Year
  Sex: Female
  Weight: 94 kg

DRUGS (14)
  1. IRINOTECAN [Suspect]
     Active Substance: IRINOTECAN
     Indication: Pancreatic carcinoma
     Dosage: STANDAARD FOLFIRINOX (113 MG?)
     Dates: start: 20240808
  2. OXALIPLATIN [Suspect]
     Active Substance: OXALIPLATIN
     Indication: Pancreatic carcinoma
     Dosage: STANDAARD FOLFIRINOX
     Dates: start: 20240808
  3. FLUOROURACIL [Suspect]
     Active Substance: FLUOROURACIL
     Indication: Pancreatic carcinoma
     Dosage: BOLUS PLUS 46 HOURS WALK-IN DRIP, HALF STRENGTH
     Dates: start: 20240808
  4. PANTOPRAZOLE [Concomitant]
     Active Substance: PANTOPRAZOLE
     Indication: Product used for unknown indication
     Dosage: GASTRO-RESISTANT TABLET, 20 MG (MILLIGRAM)
  5. VITAMINS [Concomitant]
     Active Substance: VITAMINS
     Indication: Product used for unknown indication
  6. PARACETAMOL TABLET 1000MG / PANADOL ARTHROSIS FILM-COATED TABLET 1000M [Concomitant]
     Indication: Product used for unknown indication
     Dosage: TABLET, 1000 MG (MILLIGRAM)
  7. METOCLOPRAMIDE DRINK 1MG/ML / Brand name not specified [Concomitant]
     Indication: Product used for unknown indication
     Dosage: DRINK, 1 MG/ML (MILLIGRAM PER MILLILITER)
  8. AMYLA/LIPA/PROTEA CA MSR (CREO F+25000/GEN/PANTRI) / Brand name not sp [Concomitant]
     Indication: Product used for unknown indication
     Dosage: GASTRO-RESISTANT CAPSULE, 18000/25000/1000 FE
  9. LEVOTHYROXINE CAPSULE  25UG / Brand name not specified [Concomitant]
     Indication: Product used for unknown indication
     Dosage: CAPSULE, 25 ?G (MICROGRAM)
  10. AMYLA/LIPA/PROTEA CAP MSR (CREON+CREON 10000) / Brand name not specifi [Concomitant]
     Indication: Product used for unknown indication
     Dosage: GASTRO-RESISTANT CAPSULE, 8000/10000/600 FE
  11. MACROGOL POWDER FOR DRINK 10G / Brand name not specified [Concomitant]
     Indication: Product used for unknown indication
     Dosage: POWDER FOR DRINK, 10 G (GRAM)
  12. LOPERAMIDE CAPSULE 2MG / Brand name not specified [Concomitant]
     Indication: Product used for unknown indication
     Dosage: CAPSULE, 2 MG (MILLIGRAM)
  13. LORATADINE [Concomitant]
     Active Substance: LORATADINE
     Indication: Product used for unknown indication
     Dosage: TABLET, 10 MG (MILLIGRAM)
  14. LEVOTHYROXINE CAPSULE  75UG / Brand name not specified [Concomitant]
     Indication: Product used for unknown indication
     Dosage: CAPSULE, 75 ?G (MICROGRAM)

REACTIONS (2)
  - Colitis [Recovering/Resolving]
  - Faeces discoloured [Recovering/Resolving]
